FAERS Safety Report 7370787-7 (Version None)
Quarter: 2011Q1

REPORT INFORMATION
  Report Type: 
  Country: None (occurrence: None)
  Receive Date: 20110324
  Receipt Date: 20110316
  Transmission Date: 20110831
  Serious: Yes (Hospitalization, Other)
  Sender: FDA-Public Use
  Company Number: US-BIOGENIDEC-2010BI009108

PATIENT
  Age: 62 Year
  Sex: Male
  Weight: 83 kg

DRUGS (53)
  1. POTASSIUM CHLORIDE [Concomitant]
  2. EXCEDRIN (MIGRAINE) [Concomitant]
  3. PREVACID [Concomitant]
  4. APRISO [Concomitant]
     Route: 048
     Dates: start: 20091201
  5. CHROMIUM PICOLINATE [Concomitant]
     Dosage: DOSE UNIT:200
     Route: 048
  6. GINGER [Concomitant]
     Route: 048
  7. CHONDROITIN [Concomitant]
  8. LUTEIN [Concomitant]
     Route: 048
  9. APRISO [Concomitant]
     Route: 048
  10. N ACETLY L CYSTEINE [Concomitant]
     Route: 048
  11. PROBIOTIC [Concomitant]
  12. PHAZYME [Concomitant]
     Route: 048
  13. VITAMIN E [Concomitant]
     Route: 048
  14. FLAGYL [Concomitant]
     Route: 048
  15. LOMOTIL [Concomitant]
  16. TRIMAX [Concomitant]
     Indication: MUSCLE SPASMS
  17. SONATA [Concomitant]
  18. PROBENECID [Concomitant]
  19. PHENERGAN [Concomitant]
  20. ACIDOPHILUS [Concomitant]
  21. LACTASE [Concomitant]
     Route: 048
  22. MILK THISTLE [Concomitant]
     Route: 048
  23. KRILL OIL [Concomitant]
     Route: 048
  24. VITAMIN B6 [Concomitant]
     Route: 048
  25. ROCALTROL [Concomitant]
     Route: 048
  26. CHARCOAL [Concomitant]
  27. MAXZIDE [Concomitant]
     Indication: OEDEMA
     Route: 048
  28. IMODIUM [Concomitant]
     Dates: start: 20030101
  29. HYOSCYAMINE [Concomitant]
  30. ZOFRAN [Concomitant]
     Route: 048
     Dates: start: 20100224
  31. GINKGO BILOBA [Concomitant]
     Route: 048
  32. CALCIUM MAGNESIUM [Concomitant]
  33. VITAMIN K1 [Concomitant]
     Route: 048
  34. COENZYME Q10 [Concomitant]
     Route: 048
  35. TYSABRI [Suspect]
     Indication: CROHN'S DISEASE
     Route: 042
     Dates: start: 20091021, end: 20100210
  36. MULTIPLE VITAMIN [Concomitant]
     Route: 048
  37. PRILOSEC [Concomitant]
     Route: 048
  38. GLUCOSAMINE [Concomitant]
  39. DIGESTIVE ENZYME [Concomitant]
  40. ACID EASE [Concomitant]
     Route: 048
  41. ALAPRAM [Concomitant]
  42. PHAYZYME [Concomitant]
     Route: 048
     Dates: start: 20100305
  43. PREDNISONE [Concomitant]
     Route: 048
  44. ZYRTEC [Concomitant]
     Indication: HYPERSENSITIVITY
     Route: 048
  45. ASCORBIC ACID [Concomitant]
     Route: 048
  46. ZOFRAN [Concomitant]
     Indication: NAUSEA
  47. PREDNISONE [Concomitant]
     Route: 048
  48. BETAINE [Concomitant]
     Route: 048
  49. PEPTO BISMOL [Concomitant]
  50. ACETAMINOPHEN [Concomitant]
  51. COMPAZINE [Concomitant]
     Route: 048
     Dates: start: 20100201
  52. LOMOTIL [Concomitant]
     Route: 048
     Dates: start: 20100201
  53. FOLIC ACID [Concomitant]
     Route: 048

REACTIONS (4)
  - INTESTINAL STENOSIS [None]
  - MYOCARDIAL INFARCTION [None]
  - ANASTOMOTIC COMPLICATION [None]
  - RECTAL HAEMORRHAGE [None]
